FAERS Safety Report 22900710 (Version 2)
Quarter: 2024Q1

REPORT INFORMATION
  Report Type: Report from Study
  Country: AR (occurrence: AR)
  Receive Date: 20230904
  Receipt Date: 20240211
  Transmission Date: 20240410
  Serious: Yes (Hospitalization)
  Sender: FDA-Public Use
  Company Number: AR-002147023-NVSC2019AR022199

PATIENT
  Sex: Female

DRUGS (13)
  1. COSENTYX [Suspect]
     Active Substance: SECUKINUMAB
     Indication: Ankylosing spondylitis
     Dosage: 150 MG, EVERY 28 DAYS
     Route: 065
     Dates: start: 20180628
  2. COSENTYX [Suspect]
     Active Substance: SECUKINUMAB
     Indication: Axial spondyloarthritis
     Dosage: 150 MG, QMO
     Route: 058
     Dates: start: 20180628
  3. COSENTYX [Suspect]
     Active Substance: SECUKINUMAB
     Dosage: UNK
     Route: 058
     Dates: start: 20180628, end: 20220526
  4. COSENTYX [Suspect]
     Active Substance: SECUKINUMAB
     Dosage: 300 MG
     Route: 065
     Dates: start: 201806
  5. COSENTYX [Suspect]
     Active Substance: SECUKINUMAB
     Dosage: 150 MG, EVERY 28 DAYS, STOP DATE: AROUND 20 MAY 2022, ROUTE: AUTO INJECTABLE
     Route: 065
     Dates: start: 201806
  6. COSENTYX [Suspect]
     Active Substance: SECUKINUMAB
     Dosage: 150 MG (START DATE: AROUND 20 JUL 2022), EVERY 28 DAYS, ROUTE: AUTOINJECTABLE
     Route: 065
  7. MELOXICAM [Concomitant]
     Active Substance: MELOXICAM
     Indication: Product used for unknown indication
     Dosage: 15 MG, UNKNOWN
     Route: 065
  8. ESOMEPRAZOLE [Concomitant]
     Active Substance: ESOMEPRAZOLE
     Indication: Product used for unknown indication
     Dosage: 2 DF (20MG), QD
     Route: 065
  9. ESOMEPRAZOLE [Concomitant]
     Active Substance: ESOMEPRAZOLE
     Dosage: UNK
     Route: 065
  10. CINITAPRIDE [Concomitant]
     Active Substance: CINITAPRIDE
     Indication: Product used for unknown indication
     Dosage: 1 DF(1MG), QD
     Route: 065
  11. CINITAPRIDE [Concomitant]
     Active Substance: CINITAPRIDE
     Dosage: UNK
     Route: 065
  12. FENOFIBRATE [Concomitant]
     Active Substance: FENOFIBRATE
     Indication: Product used for unknown indication
     Dosage: 150 MG, QD
     Route: 065
  13. CLONAZEPAM [Concomitant]
     Active Substance: CLONAZEPAM
     Indication: Product used for unknown indication
     Dosage: 1 DF (0.5MG), QD
     Route: 065

REACTIONS (23)
  - Intervertebral disc space narrowing [Unknown]
  - Exostosis [Unknown]
  - Myelopathy [Unknown]
  - Posture abnormal [Recovering/Resolving]
  - Stress [Unknown]
  - Gastritis [Unknown]
  - Abdominal pain upper [Recovering/Resolving]
  - Gastrooesophageal reflux disease [Unknown]
  - Gluten sensitivity [Unknown]
  - Irritable bowel syndrome [Unknown]
  - Osteoarthritis [Unknown]
  - Blepharitis [Unknown]
  - Muscle rigidity [Recovering/Resolving]
  - Dry eye [Unknown]
  - Gait disturbance [Recovering/Resolving]
  - Fatigue [Unknown]
  - Discomfort [Unknown]
  - Pain [Unknown]
  - Nerve compression [Unknown]
  - Arthralgia [Recovering/Resolving]
  - Osteoporosis [Not Recovered/Not Resolved]
  - Osteopenia [Unknown]
  - Alopecia [Not Recovered/Not Resolved]

NARRATIVE: CASE EVENT DATE: 20180101
